FAERS Safety Report 9863031 (Version 2)
Quarter: 2014Q3

REPORT INFORMATION
  Report Type: Spontaneous
  Country: GB (occurrence: GB)
  Receive Date: 20140203
  Receipt Date: 20140913
  Transmission Date: 20150326
  Serious: Yes (Other)
  Sender: FDA-Public Use
  Company Number: PHFR2014GB001016

PATIENT
  Age: 31 Year
  Sex: Female

DRUGS (1)
  1. GILENYA [Suspect]
     Active Substance: FINGOLIMOD HYDROCHLORIDE
     Indication: MULTIPLE SCLEROSIS
     Dosage: 0.5 MG, UNK
     Route: 048
     Dates: start: 20130624, end: 20140114

REACTIONS (9)
  - Fatigue [Unknown]
  - Alanine aminotransferase increased [Unknown]
  - Nausea [Unknown]
  - Hepatitis B [Recovered/Resolved]
  - Blood bilirubin increased [Unknown]
  - Chromaturia [Unknown]
  - Pruritus [Unknown]
  - Jaundice [Unknown]
  - Blood alkaline phosphatase increased [Unknown]

NARRATIVE: CASE EVENT DATE: 20140114
